FAERS Safety Report 12197956 (Version 1)
Quarter: 2016Q1

REPORT INFORMATION
  Report Type: Spontaneous
  Country: US (occurrence: US)
  Receive Date: 20160322
  Receipt Date: 20160322
  Transmission Date: 20160526
  Serious: Yes (Other)
  Sender: FDA-Public Use
  Company Number: US-JNJFOC-20151221994

PATIENT
  Sex: Female
  Weight: 76.5 kg

DRUGS (10)
  1. LOSARTAN. [Concomitant]
     Active Substance: LOSARTAN
     Indication: HYPERTENSION
     Dosage: DOSE: 25 OR 50 MG
     Route: 065
     Dates: end: 20140418
  2. INVOKANA [Suspect]
     Active Substance: CANAGLIFLOZIN
     Indication: TYPE 2 DIABETES MELLITUS
     Route: 048
     Dates: start: 20141212, end: 20151016
  3. METFORMIN [Concomitant]
     Active Substance: METFORMIN HYDROCHLORIDE
     Indication: TYPE 2 DIABETES MELLITUS
     Route: 048
     Dates: start: 20140801
  4. SIMVASTATIN. [Concomitant]
     Active Substance: SIMVASTATIN
     Indication: TYPE 2 DIABETES MELLITUS
     Dosage: DOSE: 10 MG TWICE DAILY OR 20 MG EVERY NIGHT AT BEDTIME
     Route: 065
     Dates: start: 20140801
  5. DICLOFENAC [Concomitant]
     Active Substance: DICLOFENAC
     Indication: PAIN
     Dosage: FREQUENCY: AS NEEDED
     Route: 048
     Dates: start: 20141211, end: 20150924
  6. SIMVASTATIN. [Concomitant]
     Active Substance: SIMVASTATIN
     Indication: TYPE 2 DIABETES MELLITUS
     Dosage: DOSE: 10 MG TWICE DAILY OR 20 MG EVERY NIGHT AT BEDTIME
     Route: 065
     Dates: end: 20140418
  7. LOSARTAN. [Concomitant]
     Active Substance: LOSARTAN
     Indication: HYPERTENSION
     Dosage: DOSE: 25 OR 50 MG
     Route: 065
     Dates: start: 20140801
  8. LORATADINE. [Concomitant]
     Active Substance: LORATADINE
     Indication: URTICARIA
     Dosage: FREQUENCY: AS NECESSARY
     Route: 065
     Dates: start: 20140902
  9. GLIPIZIDE. [Concomitant]
     Active Substance: GLIPIZIDE
     Indication: TYPE 2 DIABETES MELLITUS
     Route: 065
     Dates: start: 20140801
  10. VITAMIN D [Concomitant]
     Active Substance: CHOLECALCIFEROL
     Indication: VITAMIN D DEFICIENCY
     Route: 065
     Dates: start: 20150306

REACTIONS (1)
  - Renal impairment [Not Recovered/Not Resolved]
